FAERS Safety Report 6920195-5 (Version None)
Quarter: 2010Q3

REPORT INFORMATION
  Report Type: 
  Country: None (occurrence: None)
  Receive Date: 20100809
  Receipt Date: 20100803
  Transmission Date: 20110219
  Serious: Yes (Hospitalization, Other)
  Sender: FDA-Public Use
  Company Number: 2010SP037990

PATIENT
  Age: 36 Year
  Sex: Male
  Weight: 70.6 kg

DRUGS (3)
  1. PEG-INTRON [Suspect]
     Indication: HEPATITIS C
     Dosage: 96 MCG;SC
     Route: 058
     Dates: start: 20100416
  2. REBETOL [Suspect]
     Indication: HEPATITIS C
     Dosage: 1000 MG;PO
     Route: 048
     Dates: start: 20100416
  3. BOCEPREVIR (SCH-503034) [Suspect]
     Indication: HEPATITIS C
     Dosage: 2400 MG;PO
     Route: 048
     Dates: start: 20100511

REACTIONS (2)
  - INGUINAL HERNIA [None]
  - LYMPHADENOPATHY [None]
